FAERS Safety Report 7663301-X (Version None)
Quarter: 2011Q3

REPORT INFORMATION
  Report Type: 
  Country: None (occurrence: None)
  Receive Date: 20110805
  Receipt Date: 20100831
  Transmission Date: 20111222
  Serious: No
  Sender: FDA-Public Use
  Company Number: US-ABBOTT-10P-163-0667219-00

PATIENT
  Sex: Male
  Weight: 81.72 kg

DRUGS (2)
  1. NIASPAN [Suspect]
     Indication: HYPERLIPIDAEMIA
     Dates: start: 20100830
  2. NIASPAN [Suspect]
     Dates: start: 20090801, end: 20100830

REACTIONS (2)
  - MOOD ALTERED [None]
  - ASTHENIA [None]
